FAERS Safety Report 24106118 (Version 1)
Quarter: 2024Q3

REPORT INFORMATION
  Report Type: Spontaneous
  Country: US (occurrence: US)
  Receive Date: 20240717
  Receipt Date: 20240717
  Transmission Date: 20241017
  Serious: No
  Sender: AVERITAS
  Company Number: US-GRUNENTHAL-2023-112976

PATIENT
  Age: 60 Year
  Sex: Male

DRUGS (1)
  1. QUTENZA [Suspect]
     Active Substance: CAPSAICIN
     Indication: Diabetic neuropathy
     Dosage: 4 DOSAGE FORM, ONCE
     Route: 061
     Dates: start: 20230620, end: 20230620

REACTIONS (2)
  - Application site warmth [Recovering/Resolving]
  - Application site pain [Recovering/Resolving]

NARRATIVE: CASE EVENT DATE: 20230620
